FAERS Safety Report 8258366-0 (Version None)
Quarter: 2012Q2

REPORT INFORMATION
  Report Type: 
  Country: None (occurrence: None)
  Receive Date: 20120404
  Receipt Date: 20120327
  Transmission Date: 20120825
  Serious: Yes (Death, Hospitalization)
  Sender: FDA-Public Use
  Company Number: JP-CELGENEUS-087-50794-12033592

PATIENT
  Sex: Male
  Weight: 57 kg

DRUGS (16)
  1. ISODINE GARGLE [Concomitant]
     Route: 065
     Dates: start: 20111018, end: 20120212
  2. FLUCONAZON [Concomitant]
     Route: 065
     Dates: start: 20111221, end: 20120212
  3. VIDAZA [Suspect]
     Dosage: 100 MILLIGRAM
     Route: 041
     Dates: start: 20111114, end: 20111120
  4. LASIX [Concomitant]
     Route: 065
     Dates: start: 20111209, end: 20120212
  5. ALDACTONE [Concomitant]
     Route: 065
     Dates: start: 20111220, end: 20120212
  6. PREDNISOLONE [Concomitant]
     Route: 065
     Dates: start: 20120119, end: 20120125
  7. VIDAZA [Suspect]
     Dosage: 100 MILLIGRAM
     Route: 041
     Dates: start: 20111024, end: 20111030
  8. OMEPRAZOLE [Concomitant]
     Route: 065
     Dates: start: 20111018, end: 20120212
  9. PREDNISOLONE [Concomitant]
     Route: 065
     Dates: start: 20111221, end: 20120111
  10. ASPARA POTASSIUM [Concomitant]
     Route: 065
     Dates: start: 20111209
  11. VIDAZA [Suspect]
     Dosage: 100 MILLIGRAM
     Route: 041
     Dates: start: 20111216, end: 20111222
  12. FLOMOX [Concomitant]
     Indication: PROPHYLAXIS
     Route: 065
     Dates: start: 20120204, end: 20120210
  13. AMLODIPINE [Concomitant]
     Route: 065
     Dates: end: 20120212
  14. ZITHROMAX [Concomitant]
     Route: 065
     Dates: start: 20111111, end: 20111113
  15. PREDNISOLONE [Concomitant]
     Route: 065
     Dates: start: 20120112, end: 20120118
  16. PREDNISOLONE [Concomitant]
     Route: 065
     Dates: start: 20120126, end: 20120212

REACTIONS (2)
  - HAEMATEMESIS [None]
  - SEPSIS [None]
